FAERS Safety Report 5908760-5 (Version None)
Quarter: 2008Q4

REPORT INFORMATION
  Report Type: 
  Country: None (occurrence: None)
  Receive Date: 20081006
  Receipt Date: 20080928
  Transmission Date: 20090506
  Serious: Yes (Hospitalization)
  Sender: FDA-Public Use
  Company Number: US-ABBOTT-08P-163-0463858-00

PATIENT
  Sex: Male
  Weight: 77.634 kg

DRUGS (23)
  1. RITONAVIR SOFT GELATIN CAPSULES [Suspect]
     Indication: HIV INFECTION
     Route: 048
     Dates: start: 20060317
  2. TMC114 [Concomitant]
     Indication: HIV INFECTION
     Route: 048
     Dates: start: 20060317
  3. TMC125 [Concomitant]
     Indication: HIV INFECTION
     Route: 048
     Dates: start: 20060317
  4. EMTRICITABINE [Concomitant]
     Indication: HIV INFECTION
     Route: 048
     Dates: start: 20000317
  5. AZITHROMYCIN [Concomitant]
     Indication: OPPORTUNISTIC INFECTION PROPHYLAXIS
     Dates: start: 19990101
  6. DIPYRONE TAB [Concomitant]
     Indication: ANTIFUNGAL PROPHYLAXIS
     Dates: start: 19990101
  7. FAMCICLOVIR [Concomitant]
     Indication: GENITAL HERPES
     Dates: start: 19990101
  8. TRAMADOL HCL [Concomitant]
     Indication: NEUROPATHY PERIPHERAL
     Dates: start: 19990101
  9. GABAPENTIN [Concomitant]
     Indication: NEUROPATHY PERIPHERAL
     Dates: start: 19990101
  10. TESTOSTERONE [Concomitant]
     Indication: HYPOGONADISM
     Dates: start: 20010504
  11. METFORMIN HCL [Concomitant]
     Indication: TYPE 2 DIABETES MELLITUS
     Dates: start: 20020610
  12. OXANDROLONE [Concomitant]
     Indication: LIPODYSTROPHY ACQUIRED
     Dates: start: 20020710
  13. FLUTICASONE PROPIONATE [Concomitant]
     Indication: RHINITIS ALLERGIC
     Dates: start: 20020821
  14. FLUCONAZOLE [Concomitant]
     Indication: CANDIDIASIS
     Dates: start: 20021007
  15. TERBINAFINE HCL [Concomitant]
     Indication: ONYCHOMYCOSIS
     Dates: start: 20030123
  16. ZOLPIDEM TARTRATE [Concomitant]
     Indication: INSOMNIA
     Dates: start: 20030203
  17. ROSIGLITAZONE [Concomitant]
     Indication: TYPE 2 DIABETES MELLITUS
     Dates: start: 20030502
  18. ROSUVASTATIN [Concomitant]
     Indication: HYPERLIPIDAEMIA
     Dates: start: 20030101
  19. EZETIMIBE [Concomitant]
     Indication: HYPERLIPIDAEMIA
     Dates: start: 20030101
  20. NANDROLONE DECANOATE [Concomitant]
     Indication: DRUG USE FOR UNKNOWN INDICATION
     Route: 030
     Dates: start: 20041026
  21. METOPROLOL SUCCINATE [Concomitant]
     Indication: ANTICOAGULANT THERAPY
     Dates: start: 20050506
  22. INSULIN [Concomitant]
     Indication: TYPE 2 DIABETES MELLITUS
     Dosage: 70/30
     Dates: start: 20050101
  23. EPOETIN ALFA [Concomitant]
     Indication: ANAEMIA
     Dosage: 40 K UNITS
     Route: 058
     Dates: start: 20060110

REACTIONS (6)
  - CELLULITIS [None]
  - DEHYDRATION [None]
  - PNEUMONIA [None]
  - RENAL FAILURE [None]
  - RENAL FAILURE ACUTE [None]
  - SEPSIS [None]
